FAERS Safety Report 7861154-8 (Version None)
Quarter: 2011Q4

REPORT INFORMATION
  Report Type: 
  Country: None (occurrence: None)
  Receive Date: 20111025
  Receipt Date: 20111010
  Transmission Date: 20120403
  Serious: Yes (Disabling)
  Sender: FDA-Public Use
  Company Number: 2011AP002364

PATIENT
  Age: 67 Year

DRUGS (5)
  1. AMLODIPINE [Concomitant]
  2. ALENDRONATE SODIUM [Suspect]
     Indication: OSTEOPOROSIS
     Dosage: 70 MG; PO
     Route: 048
  3. CALCIUM + VITAMIN D (CALCIUM D3 BECLOMETASONE DIPROPIONATE ) [Concomitant]
  4. EPROSARTAN [Concomitant]
  5. FLUOXETINE HCL [Concomitant]

REACTIONS (1)
  - MICTURITION URGENCY [None]
